FAERS Safety Report 20898861 (Version 5)
Quarter: 2022Q3

REPORT INFORMATION
  Report Type: Spontaneous
  Country: US (occurrence: US)
  Receive Date: 20220601
  Receipt Date: 20220701
  Transmission Date: 20221026
  Serious: Yes (Hospitalization, Other)
  Sender: FDA-Public Use
  Company Number: US-UNITED THERAPEUTICS-UNT-2022-006838

PATIENT
  Age: 36 Year
  Sex: Female
  Weight: 61.678 kg

DRUGS (7)
  1. REMODULIN [Suspect]
     Active Substance: TREPROSTINIL
     Indication: Pulmonary arterial hypertension
     Dosage: UNK, CONTINUING
     Route: 041
     Dates: start: 2021
  2. REMODULIN [Suspect]
     Active Substance: TREPROSTINIL
     Dosage: 0.004 ?G/KG, CONTINUING
     Route: 041
  3. REMODULIN [Suspect]
     Active Substance: TREPROSTINIL
     Dosage: 0.011 ?G/KG, CONTINUING
     Route: 041
     Dates: end: 202206
  4. TADALAFIL [Concomitant]
     Active Substance: TADALAFIL
     Indication: Product used for unknown indication
     Dosage: UNK
     Route: 065
  5. UPTRAVI [Concomitant]
     Active Substance: SELEXIPAG
     Indication: Pulmonary hypertension
     Dosage: 1600 ?G, BID
     Route: 048
  6. UPTRAVI [Concomitant]
     Active Substance: SELEXIPAG
     Dosage: 1400 ?G, BID
     Route: 048
  7. OPSUMIT [Concomitant]
     Active Substance: MACITENTAN
     Indication: Product used for unknown indication
     Dosage: 10 MG, QD
     Route: 048
     Dates: start: 20220118

REACTIONS (27)
  - Vascular device infection [Unknown]
  - Infection [Unknown]
  - Facial bones fracture [Unknown]
  - Road traffic accident [Recovered/Resolved with Sequelae]
  - Head injury [Unknown]
  - Concussion [Unknown]
  - Memory impairment [Unknown]
  - Eye swelling [Unknown]
  - Asthenia [Unknown]
  - Pyrexia [Unknown]
  - Vomiting [Unknown]
  - Nausea [Unknown]
  - Heart rate increased [Unknown]
  - Injection site pruritus [Not Recovered/Not Resolved]
  - Injection site irritation [Not Recovered/Not Resolved]
  - Injection site pain [Not Recovered/Not Resolved]
  - Dermatitis contact [Unknown]
  - Secretion discharge [Unknown]
  - Oropharyngeal pain [Unknown]
  - Dysphonia [Unknown]
  - Dysphagia [Unknown]
  - Anosmia [Unknown]
  - Nasal discomfort [Unknown]
  - Product container issue [Recovered/Resolved]
  - Headache [Not Recovered/Not Resolved]
  - Somnolence [Unknown]
  - Anxiety [Unknown]

NARRATIVE: CASE EVENT DATE: 20220410
